FAERS Safety Report 10944918 (Version 1)
Quarter: 2015Q1

REPORT INFORMATION
  Report Type: Spontaneous
  Country: IN (occurrence: None)
  Receive Date: 20150318
  Receipt Date: 20150318
  Transmission Date: 20150721
  Serious: Yes (Hospitalization, Other)
  Sender: FDA-Public Use
  Company Number: IN-ZYDUS0007147

PATIENT
  Sex: Male

DRUGS (1)
  1. CARVEDILOL (CARVEDILOL) [Suspect]
     Active Substance: CARVEDILOL
     Indication: PRODUCT USED FOR UNKNOWN INDICATION
     Route: 048

REACTIONS (3)
  - Disease progression [None]
  - Cardiac failure [None]
  - Respiratory tract infection [None]
